FAERS Safety Report 5498230-3 (Version None)
Quarter: 2007Q4

REPORT INFORMATION
  Report Type: 
  Country: None (occurrence: None)
  Receive Date: 20071025
  Receipt Date: 20070531
  Transmission Date: 20080405
  Serious: No
  Sender: FDA-Public Use
  Company Number: A0647429A

PATIENT
  Age: 78 Year
  Sex: Female

DRUGS (5)
  1. ADVAIR DISKUS 100/50 [Suspect]
     Indication: ASTHMA
     Route: 055
     Dates: start: 20050101
  2. ATENOLOL [Concomitant]
  3. MAXZIDE [Concomitant]
  4. ASPIRIN [Concomitant]
  5. ALBUTEROL [Concomitant]

REACTIONS (3)
  - DYSGEUSIA [None]
  - PHARMACEUTICAL PRODUCT COMPLAINT [None]
  - SALIVARY HYPERSECRETION [None]
